FAERS Safety Report 5092204-2 (Version None)
Quarter: 2006Q3

REPORT INFORMATION
  Report Type: 
  Country: None (occurrence: None)
  Receive Date: 20060824
  Receipt Date: 20060808
  Transmission Date: 20061208
  Serious: Yes (Hospitalization, Other)
  Sender: FDA-Public Use
  Company Number: USA-2006-0024802

PATIENT
  Sex: Female

DRUGS (1)
  1. OXYCONTIN TABLETS (OXYCONDON HYDROCHLORIDE) PROLONGED-RELEASE TABLET [Suspect]
     Indication: HEPATITIS C
     Dosage: 80 MG, TID, INTRAVENOUS
     Route: 042

REACTIONS (2)
  - INTENTIONAL DRUG MISUSE [None]
  - SKIN ULCER [None]
